FAERS Safety Report 7452201-6 (Version None)
Quarter: 2011Q2

REPORT INFORMATION
  Report Type: 
  Country: None (occurrence: None)
  Receive Date: 20110502
  Receipt Date: 20110322
  Transmission Date: 20111010
  Serious: Yes (Other)
  Sender: FDA-Public Use
  Company Number: US-BAYER-201040334NA

PATIENT
  Age: 25 Year
  Sex: Female
  Weight: 65.76 kg

DRUGS (4)
  1. DROSPIRENONE AND ETHINYL ESTRADIOL [Suspect]
     Indication: ACNE
  2. YASMIN [Suspect]
     Indication: ACNE
  3. YAZ [Suspect]
     Indication: ACNE
     Dosage: UNK
     Dates: start: 20040101, end: 20100301
  4. YAZ [Suspect]
     Indication: CONTRACEPTION

REACTIONS (2)
  - CHOLELITHIASIS [None]
  - INJURY [None]
